FAERS Safety Report 17811351 (Version 2)
Quarter: 2020Q2

REPORT INFORMATION
  Report Type: Spontaneous
  Country: BG (occurrence: BG)
  Receive Date: 20200521
  Receipt Date: 20200610
  Transmission Date: 20200714
  Serious: Yes (Death)
  Sender: FDA-Public Use
  Company Number: BG-JNJFOC-20200522858

PATIENT
  Sex: Male
  Weight: 81 kg

DRUGS (7)
  1. DEXAMETHASONE. [Concomitant]
     Active Substance: DEXAMETHASONE
     Indication: PLASMA CELL MYELOMA
     Route: 042
     Dates: start: 20200513
  2. DARZALEX [Suspect]
     Active Substance: DARATUMUMAB
     Dosage: 600 MG/ CONCENTRATION FOR INFUSION DILUTED IN 1000 ML PHYSIOLOGICAL SERUM/ 2 VITALS 100 AND 1 VIRAL
     Route: 042
     Dates: start: 20200513, end: 20200513
  3. ZOFRAN [Concomitant]
     Active Substance: ONDANSETRON HYDROCHLORIDE
     Indication: PREMEDICATION
     Route: 048
     Dates: start: 20200513
  4. DARZALEX [Suspect]
     Active Substance: DARATUMUMAB
     Indication: PLASMA CELL MYELOMA
     Dosage: 600 MG/ CONCENTRATION FOR INFUSION DILUTED IN 1000 ML PHYSIOLOGICAL SERUM/ 2 VITALS 100 AND 1 VIRAL
     Route: 042
     Dates: start: 20200513, end: 20200513
  5. LENALIDOMIDE [Concomitant]
     Active Substance: LENALIDOMIDE
     Indication: PLASMA CELL MYELOMA
     Route: 048
     Dates: start: 20200513
  6. LORATADINE. [Concomitant]
     Active Substance: LORATADINE
     Indication: PREMEDICATION
     Route: 048
     Dates: start: 20200513
  7. PARACETAMOL [Concomitant]
     Active Substance: ACETAMINOPHEN
     Indication: PREMEDICATION
     Route: 048

REACTIONS (2)
  - Renal failure [Fatal]
  - Cardiac failure [Fatal]
